FAERS Safety Report 4994299-0 (Version None)
Quarter: 2006Q2

REPORT INFORMATION
  Report Type: 
  Country: None (occurrence: None)
  Receive Date: 20060503
  Receipt Date: 20060421
  Transmission Date: 20061013
  Serious: Yes (Hospitalization, Other)
  Sender: FDA-Public Use
  Company Number: 2006040810

PATIENT
  Age: 41 Year
  Sex: Female

DRUGS (1)
  1. MEDROXYPROGESTERONE ACETATE [Suspect]
     Indication: CONTRACEPTION
     Dosage: 1ST INJECTION, INTRAMUSCULAR
     Route: 030
     Dates: start: 19930501, end: 19930501

REACTIONS (2)
  - MENINGIOMA [None]
  - PROGESTERONE RECEPTOR ASSAY POSITIVE [None]
